FAERS Safety Report 16740318 (Version 1)
Quarter: 2019Q3

REPORT INFORMATION
  Report Type: Spontaneous
  Country: US (occurrence: US)
  Receive Date: 20190826
  Receipt Date: 20190826
  Transmission Date: 20191005
  Serious: No
  Sender: FDA-Public Use
  Company Number: US-PFIZER INC-2019244496

PATIENT
  Age: 79 Year
  Sex: Female

DRUGS (4)
  1. LEVOTHYROXINE. [Concomitant]
     Active Substance: LEVOTHYROXINE
     Dosage: UNK UNK, DAILY (112 (USUALLY TAKES IT A NIGHT))
  2. DULOXETINE HCL [Concomitant]
     Active Substance: DULOXETINE HYDROCHLORIDE
     Dosage: 60 MG, 1X/DAY (AT BED TIME)
  3. METHOTREXATE SODIUM. [Suspect]
     Active Substance: METHOTREXATE SODIUM
     Dosage: 6 MG, UNK (3RD 6MG SHOT LAST NIGHT)
  4. LOSARTAN POTASSIUM AND HYDROCHLOROTHIAZIDE [Concomitant]
     Active Substance: HYDROCHLOROTHIAZIDE\LOSARTAN POTASSIUM
     Dosage: UNK (LOSARTAN POTASSIUM 50MG- HYDROCHLOROTHIAZIDE-12.5MG)

REACTIONS (5)
  - Pain [Unknown]
  - Fatigue [Unknown]
  - Malaise [Unknown]
  - Feeling abnormal [Unknown]
  - Migraine [Unknown]
